FAERS Safety Report 11024283 (Version 2)
Quarter: 2015Q2

REPORT INFORMATION
  Report Type: Spontaneous
  Country: FI (occurrence: FI)
  Receive Date: 20150414
  Receipt Date: 20150415
  Transmission Date: 20150821
  Serious: Yes (Life-Threatening, Hospitalization)
  Sender: FDA-Public Use
  Company Number: FI-ABBVIE-15K-055-1374215-00

PATIENT
  Age: 66 Year
  Sex: Male

DRUGS (7)
  1. CALCICHEW D3 FORTE [Concomitant]
     Active Substance: CALCIUM\CHOLECALCIFEROL
     Indication: OSTEOPOROSIS
     Dosage: FORM STRENGTH: 500 MILLIGRAM/10 MICROGRAM
     Route: 048
     Dates: start: 2010
  2. TREXAN [Concomitant]
     Active Substance: METHOTREXATE SODIUM
     Indication: RHEUMATOID ARTHRITIS
     Route: 048
     Dates: start: 200112
  3. BURANA [Concomitant]
     Active Substance: IBUPROFEN
     Indication: RHEUMATOID ARTHRITIS
     Route: 048
     Dates: start: 201301
  4. IBANDRONATE RATIOPHARM [Concomitant]
     Indication: OSTEOPOROSIS
     Route: 048
     Dates: start: 201105
  5. THYROXIN [Concomitant]
     Active Substance: LEVOTHYROXINE
     Indication: HYPOTHYROIDISM
     Route: 048
  6. PREDNISOLON [Concomitant]
     Active Substance: PREDNISOLONE
     Indication: RHEUMATOID ARTHRITIS
     Route: 048
     Dates: start: 199301
  7. HUMIRA [Suspect]
     Active Substance: ADALIMUMAB
     Indication: RHEUMATOID ARTHRITIS
     Route: 058
     Dates: start: 200402

REACTIONS (4)
  - Cardiac disorder [Recovered/Resolved]
  - Coronary artery disease [Recovered/Resolved]
  - Myocardial necrosis marker increased [Recovered/Resolved]
  - Electrocardiogram ST segment depression [Recovered/Resolved]

NARRATIVE: CASE EVENT DATE: 20140427
